FAERS Safety Report 18536086 (Version 3)
Quarter: 2024Q4

REPORT INFORMATION
  Report Type: Report from Study
  Country: DE (occurrence: DE)
  Receive Date: 20201123
  Receipt Date: 20241011
  Transmission Date: 20250114
  Serious: Yes (Hospitalization)
  Sender: PFIZER
  Company Number: DE-ROCHE-2702070

PATIENT
  Age: 80 Year
  Sex: Female
  Weight: 48 kg

DRUGS (4)
  1. TRASTUZUMAB [Suspect]
     Active Substance: TRASTUZUMAB
     Indication: Breast cancer
     Dosage: 310 MG, CYCLIC
     Route: 065
     Dates: start: 20200803, end: 20201015
  2. PERTUZUMAB [Suspect]
     Active Substance: PERTUZUMAB
     Indication: Breast cancer
     Dosage: 420 MG, CYCLIC
     Route: 065
     Dates: start: 20200803, end: 20201015
  3. PACLITAXEL [Suspect]
     Active Substance: PACLITAXEL
     Indication: Breast cancer
     Dosage: 160 MG, CYCLIC
     Route: 065
     Dates: start: 20200803, end: 20201015
  4. CARBOPLATIN [Suspect]
     Active Substance: CARBOPLATIN
     Indication: Breast cancer
     Dosage: 450 MG, CYCLIC
     Route: 065
     Dates: start: 20200803, end: 20201015

REACTIONS (5)
  - Urinary tract infection [Unknown]
  - Cystitis [Not Recovered/Not Resolved]
  - Cystitis [Unknown]
  - Haematuria [Unknown]
  - Oropharyngeal candidiasis [Unknown]

NARRATIVE: CASE EVENT DATE: 20201015
